FAERS Safety Report 14668189 (Version 1)
Quarter: 2018Q1

REPORT INFORMATION
  Report Type: Spontaneous
  Country: US (occurrence: US)
  Receive Date: 20180321
  Receipt Date: 20180321
  Transmission Date: 20180509
  Serious: Yes (Other)
  Sender: FDA-Public Use
  Company Number: None

PATIENT
  Age: 38 Year
  Sex: Female
  Weight: 88.45 kg

DRUGS (3)
  1. LISINOPRIL. [Concomitant]
     Active Substance: LISINOPRIL
  2. NEXPLANON [Suspect]
     Active Substance: ETONOGESTREL
     Dates: start: 20161101
  3. IBUPROFEN. [Concomitant]
     Active Substance: IBUPROFEN

REACTIONS (4)
  - Vertigo [None]
  - Ear pain [None]
  - Abortion spontaneous [None]
  - Migraine [None]

NARRATIVE: CASE EVENT DATE: 20161120
